FAERS Safety Report 16916135 (Version 1)
Quarter: 2019Q4

REPORT INFORMATION
  Report Type: Spontaneous
  Country: US (occurrence: US)
  Receive Date: 20191014
  Receipt Date: 20191014
  Transmission Date: 20200122
  Serious: No
  Sender: FDA-Public Use
  Company Number: US-SA-2019SA274116

PATIENT
  Sex: Female

DRUGS (13)
  1. BREO ELLIPTA [Concomitant]
     Active Substance: FLUTICASONE FUROATE\VILANTEROL TRIFENATATE
  2. HYDROCHLOROTHIAZIDE. [Concomitant]
     Active Substance: HYDROCHLOROTHIAZIDE
  3. SIMVASTATIN. [Concomitant]
     Active Substance: SIMVASTATIN
  4. BD [HYALURONATE SODIUM] [Concomitant]
  5. DUTOPROL [Concomitant]
     Active Substance: HYDROCHLOROTHIAZIDE\METOPROLOL SUCCINATE
  6. CETIRIZINE HYDROCHLORIDE. [Concomitant]
     Active Substance: CETIRIZINE HYDROCHLORIDE
  7. FLUTICASONE PROPIONATE. [Concomitant]
     Active Substance: FLUTICASONE PROPIONATE
  8. METOPROLOL SUCCINATE. [Concomitant]
     Active Substance: METOPROLOL SUCCINATE
  9. DUPIXENT [Suspect]
     Active Substance: DUPILUMAB
     Dosage: 300 MG, QOW
     Route: 058
  10. LEVOTHYROXINE SODIUM. [Concomitant]
     Active Substance: LEVOTHYROXINE SODIUM
  11. AMLODIPINE BESYLATE. [Concomitant]
     Active Substance: AMLODIPINE BESYLATE
  12. FOSINOPRIL SODIUM. [Concomitant]
     Active Substance: FOSINOPRIL SODIUM
  13. LATANOPROST. [Concomitant]
     Active Substance: LATANOPROST

REACTIONS (1)
  - Product dose omission [Unknown]
